FAERS Safety Report 12776478 (Version 1)
Quarter: 2016Q3

REPORT INFORMATION
  Report Type: Other
  Country: US (occurrence: US)
  Receive Date: 20160923
  Receipt Date: 20160923
  Transmission Date: 20161109
  Serious: Yes (Other)
  Sender: FDA-Public Use
  Company Number: US-SHIRE-US201612680

PATIENT
  Sex: Female

DRUGS (2)
  1. NATPARA (PARATHYROID HORMONE) [Suspect]
     Active Substance: PARATHYROID HORMONE
     Indication: PRODUCT USED FOR UNKNOWN INDICATION
     Dosage: 25 ?G, UNKNOWN
     Route: 058
  2. NATPARA (PARATHYROID HORMONE) [Suspect]
     Active Substance: PARATHYROID HORMONE
     Dosage: 50 ?G, UNKNOWN
     Route: 058
     Dates: start: 20151104

REACTIONS (2)
  - Chest pain [Recovering/Resolving]
  - Product quality issue [Unknown]

NARRATIVE: CASE EVENT DATE: 20160912
